FAERS Safety Report 4380490-3 (Version None)
Quarter: 2004Q2

REPORT INFORMATION
  Report Type: 
  Country: None (occurrence: None)
  Receive Date: 20040618
  Receipt Date: 20040609
  Transmission Date: 20050107
  Serious: Yes (Hospitalization, Other)
  Sender: FDA-Public Use
  Company Number: CH-JNJFOC-20040602839

PATIENT
  Age: 47 Year
  Sex: Female

DRUGS (5)
  1. REMICADE [Suspect]
     Indication: CROHN'S DISEASE
     Route: 042
  2. IMUREK [Concomitant]
     Indication: CROHN'S DISEASE
     Route: 049
  3. TIBERAL [Concomitant]
     Route: 065
  4. AUGMENTIN '125' [Concomitant]
     Route: 065
  5. AUGMENTIN '125' [Concomitant]
     Route: 065

REACTIONS (6)
  - BLOOD PRESSURE INCREASED [None]
  - DEPRESSED LEVEL OF CONSCIOUSNESS [None]
  - FATIGUE [None]
  - FEELING HOT [None]
  - HEART RATE INCREASED [None]
  - LOSS OF CONSCIOUSNESS [None]
